FAERS Safety Report 6266676-1 (Version None)
Quarter: 2009Q3

REPORT INFORMATION
  Report Type: 
  Country: None (occurrence: None)
  Receive Date: 20090710
  Receipt Date: 20090701
  Transmission Date: 20100115
  Serious: Yes (Hospitalization)
  Sender: FDA-Public Use
  Company Number: WAES 0904USA01710

PATIENT
  Age: 74 Year
  Sex: Female

DRUGS (12)
  1. FOSAMAX [Suspect]
     Indication: OSTEOPOROSIS
     Dosage: 35 MG/WKY PO
     Route: 048
     Dates: start: 20081127, end: 20090329
  2. TRUSOPT [Suspect]
     Indication: GLAUCOMA
     Dosage: 2 DRPS/TID OPHT
     Route: 047
     Dates: end: 20090404
  3. TAB NEW CALCICHEW D3 (CALCIUM CARBONATE (+) CH [Suspect]
     Indication: OSTEOPOROSIS
     Dosage: 2 TAB/DAILY PO
     Route: 048
     Dates: start: 20081031, end: 20090403
  4. CAP LASOPRAN (LANSOPRAZOLE) [Suspect]
     Indication: GASTRIC ULCER
     Dosage: 15 MG/DAILY PO
     Route: 048
     Dates: end: 20090404
  5. OS HYPADIL (NIPRADILOL) [Suspect]
     Indication: GLAUCOMA
     Dosage: 2 DRPS/BID OPHT
     Route: 047
     Dates: end: 20090404
  6. XALATAN [Suspect]
     Indication: GLAUCOMA
     Dosage: 2 DRPS/DAILY OPHT
     Route: 047
     Dates: end: 20090403
  7. TAB MUCOSTA (REBAMIPIDE) [Suspect]
     Indication: GASTRITIS
     Dosage: 300 MG/DAILY PO
     Route: 048
     Dates: end: 20090404
  8. AMLODIPINE BESYLATE [Suspect]
     Indication: HYPERTENSION
     Dosage: 5 MG/DAILY PO
     Route: 048
     Dates: end: 20090404
  9. PLAVIX [Suspect]
     Indication: CEREBROVASCULAR ACCIDENT PROPHYLAXIS
     Dosage: 75 MG/DAILY PO
     Route: 048
     Dates: end: 20090404
  10. TAB PLETAAL (CILOSTAZOL) [Suspect]
     Indication: CEREBROVASCULAR ACCIDENT PROPHYLAXIS
     Dosage: 50 MG/DAILY PO
     Route: 048
     Dates: end: 20090404
  11. KETOPROFEN [Suspect]
     Indication: PAIN IN EXTREMITY
     Dosage: TOP
     Route: 061
     Dates: start: 20090316, end: 20090404
  12. VOLTAREN [Suspect]
     Indication: PAIN IN EXTREMITY
     Dosage: 25 MG/DAILY RECT
     Route: 054
     Dates: start: 20090326, end: 20090403

REACTIONS (4)
  - CENTRAL NERVOUS SYSTEM LYMPHOMA [None]
  - DRUG INEFFECTIVE [None]
  - FALL [None]
  - PAIN IN EXTREMITY [None]
